FAERS Safety Report 9348297 (Version 3)
Quarter: 2013Q4

REPORT INFORMATION
  Report Type: Spontaneous
  Country: GB (occurrence: GB)
  Receive Date: 20130614
  Receipt Date: 20131029
  Transmission Date: 20140711
  Serious: Yes (Disabling, Other)
  Sender: FDA-Public Use
  Company Number: GB-PFIZER INC-2013174987

PATIENT
  Age: 65 Year
  Sex: Male
  Weight: 80 kg

DRUGS (11)
  1. INLYTA [Suspect]
     Indication: METASTATIC RENAL CELL CARCINOMA
     Dosage: 5 MG, 2X/DAY
     Route: 048
     Dates: start: 201302
  2. PERINDOPRIL [Concomitant]
     Indication: BLOOD PRESSURE
     Dosage: 2 MG, 1X/DAY
     Route: 048
     Dates: start: 201008
  3. PERINDOPRIL [Concomitant]
     Indication: MYOCARDIAL INFARCTION
  4. BISOPROLOL [Concomitant]
     Indication: BLOOD PRESSURE
     Dosage: 2-5MG, ONCE DALIY
     Route: 048
     Dates: start: 201008
  5. BISOPROLOL [Concomitant]
     Indication: MYOCARDIAL INFARCTION
  6. ASPIRIN [Concomitant]
     Indication: ANTIPLATELET THERAPY
     Dosage: 75 MG, 1X/DAY
     Route: 048
     Dates: start: 201008
  7. ASPIRIN [Concomitant]
     Indication: MYOCARDIAL INFARCTION
  8. CONTIFLO XL [Concomitant]
     Indication: LOWER URINARY TRACT SYMPTOMS
     Dosage: 400 MG, 1X/DAY
     Route: 048
     Dates: start: 201010
  9. CONTIFLO XL [Concomitant]
     Indication: URETHRAL STENOSIS
  10. ZOMETA [Concomitant]
     Indication: BONE DENSITY DECREASED
     Dosage: VARIABLE INFUSION
     Dates: start: 201301
  11. OMEPRAZOLE [Concomitant]
     Route: 048

REACTIONS (9)
  - Malaise [Not Recovered/Not Resolved]
  - Abdominal pain [Not Recovered/Not Resolved]
  - Asthenia [Not Recovered/Not Resolved]
  - Epistaxis [Unknown]
  - Pain in extremity [Not Recovered/Not Resolved]
  - Dry skin [Not Recovered/Not Resolved]
  - Stomatitis [Not Recovered/Not Resolved]
  - Palmar-plantar erythrodysaesthesia syndrome [Not Recovered/Not Resolved]
  - Fatigue [Not Recovered/Not Resolved]
